FAERS Safety Report 13894662 (Version 1)
Quarter: 2017Q3

REPORT INFORMATION
  Report Type: Spontaneous
  Country: US (occurrence: US)
  Receive Date: 20170817
  Receipt Date: 20170817
  Transmission Date: 20171127
  Serious: Yes (Hospitalization)
  Sender: FDA-Public Use
  Company Number: None

PATIENT
  Sex: Female

DRUGS (9)
  1. DIGOXIN. [Concomitant]
     Active Substance: DIGOXIN
  2. LASIX [Concomitant]
     Active Substance: FUROSEMIDE
  3. IRON [Concomitant]
     Active Substance: IRON
  4. LOSARTAN. [Concomitant]
     Active Substance: LOSARTAN
  5. ADCIRCA [Suspect]
     Active Substance: TADALAFIL
     Indication: PULMONARY ARTERIAL HYPERTENSION
     Route: 048
     Dates: start: 20091124
  6. TENORMIN [Concomitant]
     Active Substance: ATENOLOL
  7. AZULFIDINE [Concomitant]
     Active Substance: SULFASALAZINE
  8. XARELTO [Concomitant]
     Active Substance: RIVAROXABAN
  9. ATORVASTATIN [Concomitant]
     Active Substance: ATORVASTATIN

REACTIONS (4)
  - Pneumonia [None]
  - Drug dose omission [None]
  - Cerebrovascular accident [None]
  - Diverticulitis [None]
